FAERS Safety Report 9854979 (Version 2)
Quarter: 2014Q3

REPORT INFORMATION
  Report Type: Spontaneous
  Country: US (occurrence: None)
  Receive Date: 20131226
  Receipt Date: 20140829
  Transmission Date: 20150326
  Serious: Yes (Other)
  Sender: FDA-Public Use
  Company Number: PHEH2013US013454

PATIENT
  Age: 40 Year
  Sex: Female

DRUGS (1)
  1. EXFORGE [Suspect]
     Active Substance: AMLODIPINE BESYLATE\VALSARTAN
     Dosage: 1 DF (320/10 MG), QD
     Dates: start: 20130620

REACTIONS (6)
  - Blood pressure increased [None]
  - Decreased appetite [None]
  - Vomiting [None]
  - Insomnia [None]
  - Nervousness [None]
  - Headache [None]
